FAERS Safety Report 5722159-6 (Version None)
Quarter: 2008Q2

REPORT INFORMATION
  Report Type: 
  Country: None (occurrence: None)
  Receive Date: 20080429
  Receipt Date: 20080417
  Transmission Date: 20081010
  Serious: Yes (Hospitalization)
  Sender: FDA-Public Use
  Company Number: FR-GENENTECH-259930

PATIENT
  Age: 79 Year
  Sex: Male

DRUGS (4)
  1. MABTHERA [Suspect]
     Indication: B-CELL LYMPHOMA
     Dosage: 785 MG, UNK
     Route: 042
     Dates: start: 20070613, end: 20070928
  2. MABTHERA [Suspect]
     Dosage: 750 MG, UNK
     Route: 042
     Dates: start: 20071026
  3. CYCLOPHOSPHAMIDE [Concomitant]
     Indication: DRUG USE FOR UNKNOWN INDICATION
     Dates: start: 20070613, end: 20070928
  4. ONCOVIN [Concomitant]
     Indication: DRUG USE FOR UNKNOWN INDICATION
     Dates: start: 20070613, end: 20070928

REACTIONS (1)
  - CEREBROVASCULAR ACCIDENT [None]
